FAERS Safety Report 20163024 (Version 1)
Quarter: 2021Q4

REPORT INFORMATION
  Report Type: Spontaneous
  Country: RU (occurrence: RU)
  Receive Date: 20211209
  Receipt Date: 20211209
  Transmission Date: 20220303
  Serious: Yes (Hospitalization)
  Sender: FDA-Public Use
  Company Number: RU-ABBVIE-21K-251-4189545-00

PATIENT
  Age: 28 Year
  Sex: Male

DRUGS (6)
  1. VALPROIC ACID [Suspect]
     Active Substance: VALPROIC ACID
     Indication: Suicide attempt
     Dosage: TOOK ABOUT 50 TABLETS FOR THE PURPOSE OF SUICIDE
     Route: 048
     Dates: start: 20191123, end: 20191123
  2. HYDROXYZINE [Suspect]
     Active Substance: HYDROXYZINE HYDROCHLORIDE
     Indication: Suicide attempt
     Dosage: TOOK ABOUT 50 TABLETS FOR THE PURPOSE OF SUICIDE
     Route: 048
     Dates: start: 20191123, end: 20191123
  3. VENLAFAXINE HYDROCHLORIDE [Suspect]
     Active Substance: VENLAFAXINE HYDROCHLORIDE
     Indication: Suicide attempt
     Dosage: TOOK ABOUT 10 TABLETS FOR THE PURPOSE OF SUICIDE
     Route: 048
     Dates: start: 20191123, end: 20191123
  4. MELATONIN [Suspect]
     Active Substance: MELATONIN
     Indication: Suicide attempt
     Dosage: TOOK ABOUT 8 TABLETS FOR THE PURPOSE OF SUICIDE
     Route: 048
     Dates: start: 20191123, end: 20191123
  5. CETIRIZINE HYDROCHLORIDE [Suspect]
     Active Substance: CETIRIZINE HYDROCHLORIDE
     Indication: Suicide attempt
     Dosage: TOOK ABOUT 6 TABLETS FOR THE PURPOSE OF SUICIDE
     Route: 048
     Dates: start: 20191123, end: 20191123
  6. FENPIVERINIUM BROMIDE\METAMIZOLE SODIUM\PITOFENONE HYDROCHLORIDE [Suspect]
     Active Substance: FENPIVERINIUM BROMIDE\METAMIZOLE SODIUM\PITOFENONE HYDROCHLORIDE
     Indication: Suicide attempt
     Dosage: TOOK ABOUT 20 TABLETS FOR THE PURPOSE OF SUICIDE
     Route: 048
     Dates: start: 20191123, end: 20191123

REACTIONS (4)
  - Visual impairment [Recovered/Resolved]
  - Somnolence [Recovered/Resolved]
  - Intentional overdose [Unknown]
  - Product use in unapproved indication [Unknown]
